FAERS Safety Report 5136463-6 (Version None)
Quarter: 2006Q4

REPORT INFORMATION
  Report Type: 
  Country: None (occurrence: None)
  Receive Date: 20061020
  Receipt Date: 20061006
  Transmission Date: 20070319
  Serious: Yes (Other)
  Sender: FDA-Public Use
  Company Number: 2006BH013895

PATIENT
  Sex: Male
  Weight: 68.5 kg

DRUGS (1)
  1. EXTRANEAL [Suspect]
     Indication: PERITONEAL DIALYSIS
     Dosage: IP
     Route: 033
     Dates: start: 20060925, end: 20061006

REACTIONS (4)
  - ABDOMINAL PAIN [None]
  - PYREXIA [None]
  - URINE ABNORMALITY [None]
  - WHITE BLOOD CELL COUNT DECREASED [None]
